FAERS Safety Report 15310274 (Version 1)
Quarter: 2018Q3

REPORT INFORMATION
  Report Type: Report from Study
  Country: GB (occurrence: GB)
  Receive Date: 20180823
  Receipt Date: 20180823
  Transmission Date: 20181010
  Serious: Yes (Other)
  Sender: FDA-Public Use
  Company Number: GB-TEVA-2018-GB-947694

PATIENT
  Sex: Female

DRUGS (1)
  1. COPAXONE [Suspect]
     Active Substance: GLATIRAMER ACETATE
     Indication: MULTIPLE SCLEROSIS
     Route: 058
     Dates: start: 20170808

REACTIONS (7)
  - Pain in extremity [Unknown]
  - Angina pectoris [Unknown]
  - Pain [Unknown]
  - Injection related reaction [Unknown]
  - Intentional dose omission [Unknown]
  - Multiple sclerosis [Unknown]
  - Inappropriate schedule of drug administration [Unknown]
